FAERS Safety Report 7817014-1 (Version None)
Quarter: 2011Q4

REPORT INFORMATION
  Report Type: 
  Country: None (occurrence: None)
  Receive Date: 20111017
  Receipt Date: 20111005
  Transmission Date: 20120403
  Serious: Yes (Hospitalization)
  Sender: FDA-Public Use
  Company Number: JP-UCBSA-039315

PATIENT
  Age: 58 Year
  Sex: Female

DRUGS (15)
  1. FAMOTIDINE [Concomitant]
     Dosage: TOTAL DAILY DOSE : 40 MG
     Dates: start: 20110822
  2. ACTARIT [Concomitant]
     Dosage: TOTAL DAILY DOSE : 300 MG
  3. EPERISONE HYDROCHLORIDE [Concomitant]
     Dosage: TOTAL DAILY DOSE : 150 MG
     Dates: start: 20110808
  4. DICLOFENAC SODIUM [Concomitant]
     Dosage: TOTAL DAILY DOSE : 50 MG
     Dates: start: 20110813
  5. CERTOLIZUMAB PEGOL [Suspect]
     Indication: RHEUMATOID ARTHRITIS
     Dosage: 10/NOV/2009-UNKNOWN:400MG/2 WEEKS;UNKNOWN-200MG/2 WEEKS. 25/MAY/2010-22/APR/2011;400MG/4 WEEKS
     Route: 058
     Dates: start: 20110520, end: 20110802
  6. VALSARTAN [Concomitant]
     Dosage: TOTAL DAILY DOSE: 80 MG
     Dates: start: 20021126
  7. CELECOXIB [Concomitant]
     Dosage: TOTAL DAILY DOSE : 400 MG
     Dates: start: 20101108
  8. BUCILLAMINE [Concomitant]
     Dosage: TOTAL DAILY DOSE : 200 MG
     Dates: start: 20110723
  9. LOXOPROFEN SODIUM HYDRATE [Concomitant]
     Dosage: TOTAL DAILY DOSE : 180 MG
     Dates: start: 20110808
  10. FAMOTIDINE [Concomitant]
     Dosage: TOTAL DAILY DOSE: 40 MG
     Dates: start: 20100401
  11. BLOCK INJECTION [Concomitant]
     Dosage: TOTAL DAILY DOSE :
     Dates: start: 20110808
  12. NILVADIPINE [Concomitant]
     Dosage: TOTAL DAILY DOSE : 4 MG
     Dates: start: 20100803
  13. KETOPROFEN [Concomitant]
     Dosage: ADEQUATE DOSE, PRN.
     Dates: start: 20101014
  14. LOXOPROFEN SODIUM HYDRATE [Concomitant]
     Dosage: TOTAL DAILY DOSE : 120 MG
     Dates: start: 20110822
  15. MECOBALAMIN [Concomitant]
     Dosage: TOTAL DAILY DOSE : 1500 MCG
     Dates: start: 20110808

REACTIONS (4)
  - STAPHYLOCOCCAL SEPSIS [None]
  - PSOAS ABSCESS [None]
  - INFECTIOUS PLEURAL EFFUSION [None]
  - ARTHRITIS BACTERIAL [None]
